FAERS Safety Report 8937152 (Version 1)
Quarter: 2012Q4

REPORT INFORMATION
  Report Type: Spontaneous
  Country: US (occurrence: None)
  Receive Date: 20121128
  Receipt Date: 20121128
  Transmission Date: 20130627
  Serious: Yes (Hospitalization)
  Sender: FDA-Public Use
  Company Number: None

PATIENT
  Age: 53 Year
  Sex: Male
  Weight: 78.9 kg

DRUGS (8)
  1. OXYCONTIN [Suspect]
     Indication: NEUROPATHY
     Dosage: 20MG TID PO
     Route: 048
  2. LYRICA [Suspect]
     Indication: NEUROPATHY
     Dosage: 300MG BID PO
     Route: 048
  3. ULTRAM [Suspect]
     Dosage: 300MG BID PO
     Route: 048
  4. CYMBALTA [Suspect]
     Dosage: 300MG BID PO
     Route: 048
  5. LANTUS [Concomitant]
  6. NOVOLOG [Concomitant]
  7. NEXIUM [Concomitant]
  8. LISINOPRIL [Concomitant]

REACTIONS (6)
  - Loss of consciousness [None]
  - Hypoglycaemia [None]
  - Somnolence [None]
  - Overdose [None]
  - Drug effect increased [None]
  - Blood glucose increased [None]
